FAERS Safety Report 6380547-1 (Version None)
Quarter: 2009Q3

REPORT INFORMATION
  Report Type: 
  Country: None (occurrence: None)
  Receive Date: 20090924
  Receipt Date: 20090914
  Transmission Date: 20100115
  Serious: Yes (Hospitalization)
  Sender: FDA-Public Use
  Company Number: 2009AL004421

PATIENT
  Age: 68 Year
  Sex: Male
  Weight: 83.0083 kg

DRUGS (30)
  1. DIGOXIN [Suspect]
     Dosage: 0.125MG, DAILY, PO
     Route: 048
  2. ASPIRIN [Concomitant]
  3. METFORMIN HYDROCHLORIDE [Concomitant]
  4. PLAVIX [Concomitant]
  5. AVODART [Concomitant]
  6. NEXIUM [Concomitant]
  7. FUROSEMIDE [Concomitant]
  8. GLIPIZIDE [Concomitant]
  9. INSULIN [Concomitant]
  10. METOPROLOL SUCCINATE [Concomitant]
  11. ZOCOR [Concomitant]
  12. FLOMAX [Concomitant]
  13. TEOPHYLLIN [Concomitant]
  14. KEFLEX [Concomitant]
  15. ROCEPHIN [Concomitant]
  16. ANTIVERT [Concomitant]
  17. GLUCOPHAGE [Concomitant]
  18. GLUTARAL [Concomitant]
  19. FLOMAX [Concomitant]
  20. COUMADIN [Concomitant]
  21. THEOPHYLLINE [Concomitant]
  22. GLUCOTROL [Concomitant]
  23. PRILOSEC [Concomitant]
  24. TOPROL-XL [Concomitant]
  25. PROSCAR [Concomitant]
  26. HYTRIN [Concomitant]
  27. LISINOPRIL [Concomitant]
  28. NICOTINE [Concomitant]
  29. POTASSIUM CHLORIDE [Concomitant]
  30. GLUCOTROL XL [Concomitant]

REACTIONS (21)
  - BACK PAIN [None]
  - BENIGN PROSTATIC HYPERPLASIA [None]
  - BLOOD GLUCOSE INCREASED [None]
  - BLOOD PRESSURE FLUCTUATION [None]
  - BRONCHITIS [None]
  - CARDIAC MURMUR [None]
  - DECREASED APPETITE [None]
  - DIARRHOEA [None]
  - DYSURIA [None]
  - HEART RATE IRREGULAR [None]
  - HYPOTENSION [None]
  - INGUINAL HERNIA [None]
  - LIMB INJURY [None]
  - NASAL CONGESTION [None]
  - OROPHARYNGEAL PAIN [None]
  - PAIN [None]
  - PALPITATIONS [None]
  - PULMONARY EMBOLISM [None]
  - THROMBOSIS [None]
  - TRANSIENT ISCHAEMIC ATTACK [None]
  - WEIGHT DECREASED [None]
